FAERS Safety Report 9844592 (Version 1)
Quarter: 2014Q1

REPORT INFORMATION
  Report Type: Spontaneous
  Country: US (occurrence: None)
  Receive Date: 20140123
  Receipt Date: 20140123
  Transmission Date: 20141002
  Serious: Yes (Other)
  Sender: FDA-Public Use
  Company Number: 2010001173

PATIENT
  Age: 52 Year
  Sex: Male
  Weight: 79 kg

DRUGS (2)
  1. TARCEVA (ERLOTINIB HYDROCHLORIDE) TABLET [Suspect]
     Indication: NEOPLASM
     Route: 048
     Dates: start: 20091203, end: 20091229
  2. VISMODEGIB [Suspect]
     Indication: NEOPLASM
     Route: 048
     Dates: start: 20091203, end: 20091229

REACTIONS (14)
  - Off label use [None]
  - Hiccups [None]
  - Dehydration [None]
  - Hyponatraemia [None]
  - Abdominal pain [None]
  - Blood alkaline phosphatase increased [None]
  - Aspartate aminotransferase increased [None]
  - Stevens-Johnson syndrome [None]
  - Pruritus [None]
  - Decreased appetite [None]
  - Vomiting [None]
  - Dyspnoea [None]
  - Rash maculo-papular [None]
  - Nausea [None]
